FAERS Safety Report 25670364 (Version 1)
Quarter: 2025Q3

REPORT INFORMATION
  Report Type: Spontaneous
  Country: US (occurrence: US)
  Receive Date: 20250812
  Receipt Date: 20250812
  Transmission Date: 20251020
  Serious: No
  Sender: ROCHE
  Company Number: US-ROCHE-10000352603

PATIENT
  Age: 47 Year
  Sex: Female
  Weight: 68.2 kg

DRUGS (2)
  1. ACTEMRA [Suspect]
     Active Substance: TOCILIZUMAB
     Indication: Rheumatoid arthritis
     Dosage: 280 MG IV ONCE A MONTH EVERY 28 DAYS
     Route: 042
  2. ACTEMRA [Suspect]
     Active Substance: TOCILIZUMAB
     Indication: Systemic scleroderma
     Dosage: 280 MG IV ONCE A MONTH EVERY 28 DAYS
     Route: 042

REACTIONS (3)
  - Off label use [Unknown]
  - No adverse event [Unknown]
  - Incorrect product administration duration [Unknown]

NARRATIVE: CASE EVENT DATE: 20250730
